FAERS Safety Report 4781434-2 (Version None)
Quarter: 2005Q3

REPORT INFORMATION
  Report Type: 
  Country: None (occurrence: None)
  Receive Date: 20050928
  Receipt Date: 20050922
  Transmission Date: 20060218
  Serious: Yes (Death)
  Sender: FDA-Public Use
  Company Number: US-MERCK-0509USA03411

PATIENT
  Sex: Male

DRUGS (1)
  1. VIOXX [Suspect]
     Indication: PAIN
     Route: 048

REACTIONS (1)
  - DEATH [None]
